FAERS Safety Report 9787931 (Version 2)
Quarter: 2014Q1

REPORT INFORMATION
  Report Type: Spontaneous
  Country: FR (occurrence: FR)
  Receive Date: 20131230
  Receipt Date: 20140205
  Transmission Date: 20141002
  Serious: Yes (Hospitalization)
  Sender: FDA-Public Use
  Company Number: FR-ROCHE-1326779

PATIENT
  Age: 61 Year
  Sex: Male
  Weight: 85 kg

DRUGS (8)
  1. ROACTEMRA [Suspect]
     Indication: POLYCHONDRITIS
     Route: 042
  2. CORTANCYL [Suspect]
     Indication: POLYCHONDRITIS
     Route: 048
  3. CORTANCYL [Suspect]
     Route: 065
  4. CORTANCYL [Suspect]
     Route: 065
  5. AVODART [Concomitant]
     Route: 048
     Dates: start: 201302
  6. UROREC [Concomitant]
     Route: 048
     Dates: start: 201302
  7. ISOPTINE [Concomitant]
     Route: 048
     Dates: start: 2011
  8. CACIT VITAMINE D3 [Concomitant]
     Route: 048
     Dates: start: 201306

REACTIONS (3)
  - Oedema peripheral [Recovering/Resolving]
  - Face oedema [Recovering/Resolving]
  - Weight increased [Recovering/Resolving]
